FAERS Safety Report 6742484-X (Version None)
Quarter: 2010Q2

REPORT INFORMATION
  Report Type: 
  Country: None (occurrence: None)
  Receive Date: 20100526
  Receipt Date: 20100519
  Transmission Date: 20101027
  Serious: Yes (Hospitalization, Other)
  Sender: FDA-Public Use
  Company Number: CA-ABBOTT-10P-028-0630467-00

PATIENT
  Sex: Male

DRUGS (2)
  1. HUMIRA [Suspect]
     Indication: CROHN'S DISEASE
     Route: 058
     Dates: start: 20090904, end: 20100217
  2. HUMIRA [Suspect]
     Route: 058
     Dates: start: 20100519

REACTIONS (7)
  - ENTEROCUTANEOUS FISTULA [None]
  - ENTEROVESICAL FISTULA [None]
  - FISTULA DISCHARGE [None]
  - INCISION SITE INFECTION [None]
  - INCISIONAL DRAINAGE [None]
  - SMALL INTESTINAL STENOSIS [None]
  - WOUND DEHISCENCE [None]
